FAERS Safety Report 6970485-5 (Version None)
Quarter: 2010Q3

REPORT INFORMATION
  Report Type: 
  Country: None (occurrence: None)
  Receive Date: 20100824
  Receipt Date: 20100406
  Transmission Date: 20110219
  Serious: Yes (Hospitalization)
  Sender: FDA-Public Use
  Company Number: 2010043573

PATIENT
  Age: 80 Year
  Sex: Male

DRUGS (5)
  1. NORVASC [Suspect]
     Indication: HYPERTENSION
     Dosage: 5 MG, 1X/DAY, ORAL, 2.5 MG, 1X/DAY, ORAL
     Route: 048
     Dates: start: 20090101, end: 20090101
  2. NORVASC [Suspect]
     Indication: HYPERTENSION
     Dosage: 5 MG, 1X/DAY, ORAL, 2.5 MG, 1X/DAY, ORAL
     Route: 048
     Dates: start: 20090301, end: 20090101
  3. NADOLOL [Concomitant]
  4. ATACAND [Concomitant]
  5. HYDROCHLOROTHIAZIDE WITH TRIAMTERENE (HYDROCHLOROTHIAZIDE, TRIAMTERENE [Concomitant]

REACTIONS (2)
  - CEREBROVASCULAR ACCIDENT [None]
  - OEDEMA PERIPHERAL [None]
